FAERS Safety Report 5125806-5 (Version None)
Quarter: 2006Q3

REPORT INFORMATION
  Report Type: 
  Country: None (occurrence: None)
  Receive Date: 20060817
  Receipt Date: 20060517
  Transmission Date: 20061208
  Serious: Yes (Other)
  Sender: FDA-Public Use
  Company Number: 2006037606

PATIENT
  Age: 69 Year
  Sex: Female

DRUGS (2)
  1. DELTASONE [Suspect]
     Indication: FACIAL PAIN
  2. DELTASONE [Suspect]
     Indication: SWELLING

REACTIONS (6)
  - GASTROINTESTINAL DISORDER [None]
  - INSOMNIA [None]
  - IRRITABLE BOWEL SYNDROME [None]
  - PAIN [None]
  - SWELLING [None]
  - UNEVALUABLE EVENT [None]
